FAERS Safety Report 17291558 (Version 1)
Quarter: 2020Q1

REPORT INFORMATION
  Report Type: Report from Study
  Country: KR (occurrence: KR)
  Receive Date: 20200121
  Receipt Date: 20200121
  Transmission Date: 20200409
  Serious: Yes (Hospitalization, Other)
  Sender: FDA-Public Use
  Company Number: KR-BAYER-2019-184660

PATIENT
  Sex: Female

DRUGS (1)
  1. BETAFERON [Suspect]
     Active Substance: INTERFERON BETA-1B
     Indication: MULTIPLE SCLEROSIS
     Dosage: UNK, QOD
     Route: 058
     Dates: start: 20191007

REACTIONS (14)
  - Muscular weakness [None]
  - Nasopharyngitis [Recovered/Resolved]
  - Muscular weakness [Not Recovered/Not Resolved]
  - Neuromyelitis optica spectrum disorder [None]
  - Vomiting [None]
  - Urinary incontinence [Recovering/Resolving]
  - Injection site erythema [None]
  - Vomiting [None]
  - Neuromyelitis optica spectrum disorder [None]
  - Inappropriate affect [Recovering/Resolving]
  - Regurgitation [None]
  - Hiccups [Recovering/Resolving]
  - Dysarthria [None]
  - Nausea [Not Recovered/Not Resolved]

NARRATIVE: CASE EVENT DATE: 20191105
